FAERS Safety Report 13275428 (Version 9)
Quarter: 2017Q3

REPORT INFORMATION
  Report Type: Report from Study
  Country: KR (occurrence: KR)
  Receive Date: 20170228
  Receipt Date: 20170808
  Transmission Date: 20171127
  Serious: Yes (Hospitalization)
  Sender: FDA-Public Use
  Company Number: KR-ROCHE-1899127

PATIENT
  Age: 54 Year
  Sex: Male
  Weight: 74 kg

DRUGS (20)
  1. COBIMETINIB. [Suspect]
     Active Substance: COBIMETINIB
     Indication: COLORECTAL ADENOCARCINOMA
     Dosage: MOST RECENT DOSE FIRST OCCURRENCES OF CHOLANGITIS AND THE FIRST OCCURRENCE OF CPK ELEVATION: 16/FEB/
     Route: 048
     Dates: start: 20161201
  2. TANTUM (SOUTH KOREA) [Concomitant]
     Indication: STOMATITIS
     Route: 048
     Dates: start: 20161229
  3. MINOCIN [Concomitant]
     Active Substance: MINOCYCLINE HYDROCHLORIDE
     Indication: RASH
     Route: 048
     Dates: start: 20161229
  4. IR CONDONE (UNK INGREDIENTS) [Concomitant]
     Indication: ABDOMINAL PAIN
     Route: 048
     Dates: start: 20170213
  5. CETIZAL [Concomitant]
     Indication: RASH
     Route: 048
     Dates: start: 20170303, end: 20170310
  6. GASMOTIN [Concomitant]
     Active Substance: MOSAPRIDE CITRATE
     Indication: ABDOMINAL DISCOMFORT
     Route: 048
     Dates: start: 20170209
  7. MOSAZAL [Concomitant]
     Indication: ABDOMINAL DISCOMFORT
     Route: 048
     Dates: start: 20170409
  8. COBIMETINIB. [Suspect]
     Active Substance: COBIMETINIB
     Dosage: THERAPY REINTRODUCED
     Route: 048
     Dates: start: 20170316
  9. PETHIDINE HCL [Concomitant]
     Indication: PAIN
     Route: 042
     Dates: start: 20170228, end: 20170228
  10. TRAMAROL [Concomitant]
     Indication: ABDOMINAL PAIN
     Route: 048
     Dates: start: 20170213, end: 20170227
  11. HEPAVIA [Concomitant]
     Route: 042
     Dates: start: 20170228, end: 20170304
  12. MINOCYCLINE [Concomitant]
     Active Substance: MINOCYCLINE\MINOCYCLINE HYDROCHLORIDE
     Indication: PRODUCT USED FOR UNKNOWN INDICATION
  13. CLEOCIN [Concomitant]
     Active Substance: CLINDAMYCIN PHOSPHATE
     Indication: RASH
     Route: 048
     Dates: start: 20161229
  14. LACTICARE-HC [Concomitant]
     Indication: RASH
     Route: 062
     Dates: start: 20170126
  15. CODONOPSIS [Concomitant]
     Indication: ABDOMINAL PAIN
     Dosage: IMMEDIATE RELEASE
     Route: 048
     Dates: start: 20170213
  16. ATEZOLIZUMAB. [Suspect]
     Active Substance: ATEZOLIZUMAB
     Indication: COLORECTAL ADENOCARCINOMA
     Dosage: MOST RECENT DOSE FIRST OCCURRENCES: 09/FEB/2017 (840 MG AT 12:16).?MOST RECENT DOSE PRIOR TO SECOND
     Route: 042
     Dates: start: 20161201
  17. PENIRAMIN [Concomitant]
     Indication: RASH
     Route: 048
     Dates: start: 20170413
  18. CEFTRIAXONE. [Concomitant]
     Active Substance: CEFTRIAXONE
     Indication: PYREXIA
     Route: 042
     Dates: start: 20170304, end: 20170304
  19. PERDIPINE [Concomitant]
     Active Substance: NICARDIPINE HYDROCHLORIDE
     Indication: HYPERTENSION
     Route: 042
     Dates: start: 20170209, end: 20170209
  20. GASTER (SOUTH KOREA) [Concomitant]
     Indication: ABDOMINAL DISCOMFORT
     Route: 048
     Dates: start: 20170209

REACTIONS (4)
  - Blood creatine phosphokinase increased [Recovered/Resolved]
  - Cholangitis [Recovered/Resolved]
  - Cholangitis [Recovered/Resolved]
  - Blood creatine phosphokinase increased [Recovered/Resolved]

NARRATIVE: CASE EVENT DATE: 20170223
